FAERS Safety Report 16668481 (Version 2)
Quarter: 2019Q3

REPORT INFORMATION
  Report Type: Spontaneous
  Country: DE (occurrence: DE)
  Receive Date: 20190805
  Receipt Date: 20190808
  Transmission Date: 20191004
  Serious: Yes (Other)
  Sender: FDA-Public Use
  Company Number: DE-PFIZER INC-2019323619

PATIENT
  Age: 74 Year
  Sex: Male

DRUGS (1)
  1. PACLITAXEL. [Suspect]
     Active Substance: PACLITAXEL
     Indication: SKIN ANGIOSARCOMA
     Dosage: 80 MG/M2, WEEKLY
     Dates: start: 201601

REACTIONS (4)
  - Eastern Cooperative Oncology Group performance status worsened [Unknown]
  - Off label use [Unknown]
  - Product use in unapproved indication [Unknown]
  - Neuropathy peripheral [Unknown]

NARRATIVE: CASE EVENT DATE: 2016
